FAERS Safety Report 7920052-1 (Version None)
Quarter: 2011Q4

REPORT INFORMATION
  Report Type: 
  Country: None (occurrence: None)
  Receive Date: 20111117
  Receipt Date: 20111107
  Transmission Date: 20120403
  Serious: Yes (Other)
  Sender: FDA-Public Use
  Company Number: US-BAYER-2011-055262

PATIENT
  Age: 50 Year
  Sex: Female
  Weight: 102.49 kg

DRUGS (7)
  1. DROSPIRENONE AND ETHINYL ESTRADIOL [Suspect]
     Indication: CONTRACEPTION
     Dosage: UNK
     Route: 048
     Dates: start: 20000101, end: 20100101
  2. CIPRO [Concomitant]
     Dosage: UNK
     Dates: start: 20100130
  3. FLUCONAZOLE [Concomitant]
     Dosage: UNK
     Dates: start: 20100130
  4. PROMETHAZINE [Concomitant]
     Dosage: UNK
     Dates: start: 20100130
  5. YASMIN [Suspect]
     Indication: CONTRACEPTION
     Dosage: UNK
     Route: 048
     Dates: start: 20000101, end: 20100301
  6. BENICAR [Concomitant]
     Indication: HYPERTENSION
     Dosage: UNK
     Dates: start: 20091001
  7. METRONIDAZOLE [Concomitant]
     Dosage: UNK
     Dates: start: 20100130

REACTIONS (4)
  - INJURY [None]
  - PAIN [None]
  - GALLBLADDER NON-FUNCTIONING [None]
  - BILIARY DYSKINESIA [None]
